FAERS Safety Report 8838292 (Version 1)
Quarter: 2012Q4

REPORT INFORMATION
  Report Type: 
  Country: US (occurrence: US)
  Receive Date: 20121012
  Receipt Date: 20121012
  Transmission Date: 20130627
  Serious: Yes (Other)
  Sender: FDA-Public Use
  Company Number: US-US-EMD SERONO, INC.-7166124

PATIENT
  Sex: Female

DRUGS (1)
  1. REBIF [Suspect]
     Indication: PRODUCT USED FOR UNKNOWN INDICATION
     Dates: start: 20101013, end: 201209

REACTIONS (4)
  - Rotator cuff syndrome [Unknown]
  - Weight decreased [Unknown]
  - Influenza like illness [Unknown]
  - Injection site reaction [Recovered/Resolved]
